FAERS Safety Report 19717090 (Version 4)
Quarter: 2021Q3

REPORT INFORMATION
  Report Type: Report from Study
  Country: DK (occurrence: DK)
  Receive Date: 20210818
  Receipt Date: 20210930
  Transmission Date: 20211014
  Serious: Yes (Hospitalization)
  Sender: FDA-Public Use
  Company Number: DK-TAKEDA-2021TUS050182

PATIENT
  Age: 72 Year
  Sex: Female
  Weight: 79 kg

DRUGS (1)
  1. IXAZOMIB [Suspect]
     Active Substance: IXAZOMIB
     Indication: PLASMA CELL MYELOMA
     Dosage: 4 MILLIGRAM, 1/WEEK
     Route: 048
     Dates: start: 20200716, end: 20210811

REACTIONS (4)
  - Eczema [Recovered/Resolved]
  - Respiratory distress [Recovered/Resolved]
  - Respiratory syncytial virus test positive [Recovered/Resolved]
  - C-reactive protein increased [Recovered/Resolved]
